FAERS Safety Report 4272829-4 (Version None)
Quarter: 2004Q1

REPORT INFORMATION
  Report Type: 
  Country: None (occurrence: None)
  Receive Date: 20040114
  Receipt Date: 20040102
  Transmission Date: 20041129
  Serious: Yes (Hospitalization, Other)
  Sender: FDA-Public Use
  Company Number: 2004001287

PATIENT
  Sex: Male
  Weight: 77.1115 kg

DRUGS (2)
  1. NORVASC [Suspect]
     Indication: BLOOD PRESSURE
     Dosage: ORAL
     Route: 048
  2. ALL OTHER THERAPEUTIC PRODUCTS [Concomitant]

REACTIONS (4)
  - CARDIAC OPERATION [None]
  - DYSGEUSIA [None]
  - DYSPEPSIA [None]
  - PHARMACEUTICAL PRODUCT COMPLAINT [None]
